FAERS Safety Report 8934054 (Version 1)
Quarter: 2012Q4

REPORT INFORMATION
  Report Type: 
  Country: GB (occurrence: GB)
  Receive Date: 20121129
  Receipt Date: 20121129
  Transmission Date: 20130627
  Serious: Yes (Hospitalization, Other)
  Sender: FDA-Public Use
  Company Number: GB-PFIZER INC-2012296721

PATIENT
  Age: 56 Year
  Sex: Female
  Weight: 94 kg

DRUGS (7)
  1. GENOTROPIN [Suspect]
     Dosage: UNK
     Route: 058
     Dates: start: 20070113
  2. BROMOCRIPTINE [Concomitant]
     Indication: PARKINSONISM
     Dosage: UNK
     Dates: start: 19811209
  3. THYROXINE [Concomitant]
     Indication: THYROID DISORDER
     Dosage: UNK
     Dates: start: 20000721
  4. THYROXINE [Concomitant]
     Indication: PRIMARY HYPOTHYROIDISM
  5. HYDROCORTISONE [Concomitant]
     Indication: ACTH DECREASED
     Dosage: UNK
     Dates: start: 20000721
  6. CITALOPRAM [Concomitant]
     Indication: DEPRESSIVE DISORDER
     Dosage: UNK
     Dates: start: 20060111
  7. CITALOPRAM [Concomitant]
     Indication: PANIC DISORDER

REACTIONS (1)
  - Pituitary tumour [Unknown]
